FAERS Safety Report 23845785 (Version 1)
Quarter: 2024Q2

REPORT INFORMATION
  Report Type: Spontaneous
  Country: PL (occurrence: PL)
  Receive Date: 20240512
  Receipt Date: 20240512
  Transmission Date: 20240715
  Serious: Yes (Life-Threatening, Hospitalization)
  Sender: FDA-Public Use
  Company Number: PL-SANDOZ-SDZ2024PL047441

PATIENT
  Sex: Male

DRUGS (19)
  1. AMPICILLIN [Suspect]
     Active Substance: AMPICILLIN
     Indication: Necrotising colitis
     Dosage: 2?270MG
     Route: 042
  2. AMPICILLIN [Suspect]
     Active Substance: AMPICILLIN
     Indication: Gastritis bacterial
  3. AMPICILLIN [Suspect]
     Active Substance: AMPICILLIN
     Indication: Pneumatosis intestinalis
  4. FLUCONAZOLE [Suspect]
     Active Substance: FLUCONAZOLE
     Indication: Necrotising colitis
     Dosage: UNK
     Route: 065
  5. FLUCONAZOLE [Suspect]
     Active Substance: FLUCONAZOLE
     Indication: Gastritis bacterial
  6. FLUCONAZOLE [Suspect]
     Active Substance: FLUCONAZOLE
     Indication: Pneumatosis intestinalis
  7. GENTAMICIN [Suspect]
     Active Substance: GENTAMICIN
     Indication: Necrotising colitis
     Dosage: 1?14MG
     Route: 042
  8. GENTAMICIN [Suspect]
     Active Substance: GENTAMICIN
     Indication: Gastritis bacterial
  9. GENTAMICIN [Suspect]
     Active Substance: GENTAMICIN
     Indication: Pneumatosis intestinalis
  10. MEROPENEM [Suspect]
     Active Substance: MEROPENEM
     Indication: Necrotising colitis
     Dosage: 3?40MG/KG/DOSE IV FOR 4H WITH 4-HOUR BREAK
     Route: 042
  11. MEROPENEM [Suspect]
     Active Substance: MEROPENEM
     Indication: Gastritis bacterial
  12. MEROPENEM [Suspect]
     Active Substance: MEROPENEM
     Indication: Pneumatosis intestinalis
  13. VANCOMYCIN [Suspect]
     Active Substance: VANCOMYCIN
     Indication: Necrotising colitis
     Dosage: 10MG/KG/DOSE IV EVERY 12H
     Route: 042
  14. VANCOMYCIN [Suspect]
     Active Substance: VANCOMYCIN
     Indication: Gastritis bacterial
  15. VANCOMYCIN [Suspect]
     Active Substance: VANCOMYCIN
     Indication: Pneumatosis intestinalis
  16. DOBUTAMINE [Concomitant]
     Active Substance: DOBUTAMINE HYDROCHLORIDE
     Indication: Cardiac failure
     Dosage: 5MCG/KG/MIN
     Route: 065
  17. DOPAMINE [Concomitant]
     Active Substance: DOPAMINE HYDROCHLORIDE
     Indication: Cardiac failure
     Dosage: 10MCG/KG/MIN
     Route: 065
  18. ACETAMINOPHEN [Concomitant]
     Active Substance: ACETAMINOPHEN
     Indication: Product used for unknown indication
     Route: 065
  19. ACETAMINOPHEN [Concomitant]
     Active Substance: ACETAMINOPHEN
     Indication: Product used for unknown indication
     Route: 065

REACTIONS (2)
  - General physical health deterioration [Unknown]
  - Drug ineffective [Unknown]
